FAERS Safety Report 24062691 (Version 1)
Quarter: 2024Q3

REPORT INFORMATION
  Report Type: Spontaneous
  Country: CN (occurrence: CN)
  Receive Date: 20240708
  Receipt Date: 20240708
  Transmission Date: 20241017
  Serious: Yes (Other)
  Sender: ROCHE
  Company Number: CN-BoehringerIngelheim-2024-BI-037571

PATIENT
  Age: 80 Year
  Sex: Female
  Weight: 52.0 kg

DRUGS (1)
  1. ALTEPLASE [Suspect]
     Active Substance: ALTEPLASE
     Indication: Thrombolysis
     Route: 042
     Dates: start: 20240621, end: 20240621

REACTIONS (4)
  - Cerebral haemorrhage [Unknown]
  - Brain oedema [Unknown]
  - Brain herniation [Unknown]
  - Off label use [Unknown]

NARRATIVE: CASE EVENT DATE: 20240621
